FAERS Safety Report 8952613 (Version 1)
Quarter: 2012Q4

REPORT INFORMATION
  Report Type: 
  Country: US (occurrence: US)
  Receive Date: 20121205
  Receipt Date: 20121205
  Transmission Date: 20130627
  Serious: No
  Sender: FDA-Public Use
  Company Number: US-009507513-1212USA000557

PATIENT

DRUGS (3)
  1. SINGULAIR [Suspect]
     Dosage: UNK
     Route: 048
  2. SYMBICORT [Concomitant]
     Dosage: UNK
  3. VENTOLIN (ALBUTEROL SULFATE) [Concomitant]
     Dosage: UNK

REACTIONS (2)
  - Pneumonia [Unknown]
  - Pneumonia [Unknown]
